FAERS Safety Report 5016068-8 (Version None)
Quarter: 2006Q2

REPORT INFORMATION
  Report Type: 
  Country: None (occurrence: None)
  Receive Date: 20060531
  Receipt Date: 20060531
  Transmission Date: 20061013
  Serious: Yes (Other)
  Sender: FDA-Public Use
  Company Number: None

PATIENT
  Age: 39 Year
  Sex: Male
  Weight: 90.7194 kg

DRUGS (2)
  1. EFFEXOR [Suspect]
     Indication: DEPRESSION
     Dosage: SEVERAL
     Dates: start: 19970101, end: 20060529
  2. LORAZEPAM [Concomitant]

REACTIONS (9)
  - AGITATION [None]
  - BLOOD PRESSURE ABNORMAL [None]
  - DRUG INEFFECTIVE [None]
  - DRUG WITHDRAWAL SYNDROME [None]
  - DYSPNOEA [None]
  - FEELING ABNORMAL [None]
  - IRRITABILITY [None]
  - PALPITATIONS [None]
  - SUICIDAL IDEATION [None]
